FAERS Safety Report 15180728 (Version 1)
Quarter: 2018Q3

REPORT INFORMATION
  Report Type: Spontaneous
  Country: GB (occurrence: GB)
  Receive Date: 20180723
  Receipt Date: 20180723
  Transmission Date: 20181010
  Serious: Yes (Hospitalization)
  Sender: FDA-Public Use
  Company Number: PHHY2018GB051869

PATIENT
  Age: 35 Year
  Sex: Female

DRUGS (1)
  1. CETIRIZINE HYDROCHLORIDE. [Suspect]
     Active Substance: CETIRIZINE HYDROCHLORIDE
     Indication: PRODUCT USED FOR UNKNOWN INDICATION
     Dosage: UNK
     Route: 065

REACTIONS (4)
  - Reaction to excipient [Not Recovered/Not Resolved]
  - Rash [Not Recovered/Not Resolved]
  - Drug prescribing error [Not Recovered/Not Resolved]
  - Swelling [Not Recovered/Not Resolved]
